FAERS Safety Report 21561984 (Version 2)
Quarter: 2022Q4

REPORT INFORMATION
  Report Type: Spontaneous
  Country: US (occurrence: US)
  Receive Date: 20221107
  Receipt Date: 20221214
  Transmission Date: 20230113
  Serious: Yes (Death, Life-Threatening)
  Sender: FDA-Public Use
  Company Number: US-AMERICAN REGENT INC-2022003181

PATIENT
  Age: 84 Year
  Sex: Female
  Weight: 63.8 kg

DRUGS (4)
  1. VENOFER [Suspect]
     Active Substance: IRON SUCROSE
     Indication: Anaemia
     Dosage: 100 MILLIGRAM, 3 IN 1 WK
     Dates: start: 20221017, end: 20221017
  2. VENOFER [Suspect]
     Active Substance: IRON SUCROSE
     Dosage: 100 MILLIGRAM, 3 IN 1 WK
     Dates: start: 202210, end: 202210
  3. VENOFER [Suspect]
     Active Substance: IRON SUCROSE
     Dosage: 100 MILLIGRAM, 3 IN 1 WK
     Dates: start: 20221021, end: 20221021
  4. MIRCERA [Suspect]
     Active Substance: METHOXY POLYETHYLENE GLYCOL-EPOETIN BETA
     Indication: Nephrogenic anaemia
     Dosage: 30 MICROGRAM, ONCE
     Dates: start: 20221021, end: 20221021

REACTIONS (1)
  - Cardiac arrest [Fatal]

NARRATIVE: CASE EVENT DATE: 20221021
